FAERS Safety Report 5534879-7 (Version None)
Quarter: 2007Q4

REPORT INFORMATION
  Report Type: 
  Country: None (occurrence: None)
  Receive Date: 20071205
  Receipt Date: 20071203
  Transmission Date: 20080405
  Serious: No
  Sender: FDA-Public Use
  Company Number: US-BOEHRINGER INGELHEIM PHARMACEUTICALS, INC.-2007-BP-20674BP

PATIENT
  Age: 53 Year
  Sex: Female

DRUGS (7)
  1. SPIRIVA [Suspect]
     Indication: DYSPNOEA
     Route: 055
  2. ALBUTEROL [Concomitant]
  3. ACETAMINOPHEN AND OXYCODONE HCL [Concomitant]
  4. ALPRAZOLAM [Concomitant]
  5. BACLOFEN [Concomitant]
  6. OXYCODONE HCL [Concomitant]
  7. PREMARIN [Concomitant]

REACTIONS (1)
  - DRUG INEFFECTIVE [None]
